FAERS Safety Report 16356785 (Version 1)
Quarter: 2019Q2

REPORT INFORMATION
  Report Type: Report from Study
  Country: None (occurrence: US)
  Receive Date: 20190527
  Receipt Date: 20190527
  Transmission Date: 20190711
  Serious: Yes (Hospitalization, Other)
  Sender: FDA-Public Use
  Company Number: US-ABBVIE-19K-163-2680950-00

PATIENT
  Age: 58 Year
  Sex: Female

DRUGS (3)
  1. HUMIRA [Suspect]
     Active Substance: ADALIMUMAB
     Route: 058
     Dates: start: 20190221, end: 201904
  2. HUMIRA [Suspect]
     Active Substance: ADALIMUMAB
     Indication: RHEUMATOID ARTHRITIS
     Route: 058
     Dates: start: 20180515, end: 20190103
  3. METHOTREXATE. [Concomitant]
     Active Substance: METHOTREXATE
     Indication: PRODUCT USED FOR UNKNOWN INDICATION

REACTIONS (16)
  - Dry eye [Unknown]
  - Pain [Not Recovered/Not Resolved]
  - Vision blurred [Unknown]
  - Gait disturbance [Not Recovered/Not Resolved]
  - Joint swelling [Unknown]
  - Arthralgia [Unknown]
  - Nasopharyngitis [Unknown]
  - Intervertebral disc protrusion [Unknown]
  - Intervertebral disc operation [Recovered/Resolved]
  - Spinal laminectomy [Recovered/Resolved]
  - Impaired self-care [Unknown]
  - Back pain [Unknown]
  - Discomfort [Not Recovered/Not Resolved]
  - Loss of personal independence in daily activities [Not Recovered/Not Resolved]
  - Joint stiffness [Unknown]
  - Inflammation [Unknown]

NARRATIVE: CASE EVENT DATE: 2019
